FAERS Safety Report 6391102-1 (Version None)
Quarter: 2009Q4

REPORT INFORMATION
  Report Type: 
  Country: None (occurrence: None)
  Receive Date: 20091007
  Receipt Date: 20090924
  Transmission Date: 20100525
  Serious: Yes (Other)
  Sender: FDA-Public Use
  Company Number: AU-RANBAXY-2009US-28398

PATIENT

DRUGS (11)
  1. ZIDOVUDINE [Suspect]
     Indication: HIV INFECTION
     Dosage: UNK, UNK
     Route: 065
  2. LAMIVUDINE [Suspect]
     Indication: HIV INFECTION
     Route: 065
  3. NELFINAVIR [Suspect]
     Indication: HIV INFECTION
     Route: 065
  4. NEVIRAPINE [Suspect]
     Indication: HIV INFECTION
     Route: 065
  5. RITONAVIR [Suspect]
     Indication: HIV INFECTION
     Route: 065
  6. SAQUINAVIR [Suspect]
     Indication: HIV INFECTION
     Route: 065
  7. ATAZANAVIR [Suspect]
     Indication: HIV INFECTION
     Route: 065
  8. DIDANOSINE [Suspect]
     Indication: HIV INFECTION
     Route: 065
  9. EFAVIRENZ [Suspect]
     Indication: HIV INFECTION
  10. EMTRICITABINE [Suspect]
     Indication: HIV INFECTION
  11. TENOFOVIR DISOPROXIL FUMARATE [Suspect]
     Indication: HIV INFECTION

REACTIONS (7)
  - BRADYKINESIA [None]
  - HYPOKINESIA [None]
  - MASKED FACIES [None]
  - MUSCLE RIGIDITY [None]
  - PARKINSONIAN REST TREMOR [None]
  - PARKINSONISM [None]
  - RAPID EYE MOVEMENTS SLEEP ABNORMAL [None]
